FAERS Safety Report 5815627-X (Version None)
Quarter: 2008Q3

REPORT INFORMATION
  Report Type: 
  Country: None (occurrence: None)
  Receive Date: 20080718
  Receipt Date: 20080703
  Transmission Date: 20090109
  Serious: Yes (Hospitalization, Other)
  Sender: FDA-Public Use
  Company Number: IE-GENENTECH-264743

PATIENT
  Sex: Female
  Weight: 76 kg

DRUGS (25)
  1. XOLAIR [Suspect]
     Indication: ASTHMA
     Dosage: 375 MG, UNK
     Route: 058
     Dates: start: 20080402
  2. COMBIVENT [Concomitant]
     Indication: DRUG USE FOR UNKNOWN INDICATION
  3. SODIUM CHLORIDE [Concomitant]
     Indication: DRUG USE FOR UNKNOWN INDICATION
  4. CARBOCISTEINE [Concomitant]
     Indication: DRUG USE FOR UNKNOWN INDICATION
  5. THEOPHYLLINE [Concomitant]
     Indication: DRUG USE FOR UNKNOWN INDICATION
  6. SERETIDE [Concomitant]
     Indication: DRUG USE FOR UNKNOWN INDICATION
  7. PANTOPRAZOLE SODIUM [Concomitant]
     Indication: DRUG USE FOR UNKNOWN INDICATION
  8. PREDNISOLONE [Concomitant]
     Indication: DRUG USE FOR UNKNOWN INDICATION
  9. SERTRALINE [Concomitant]
     Indication: DRUG USE FOR UNKNOWN INDICATION
  10. SIBELIUM [Concomitant]
     Indication: DRUG USE FOR UNKNOWN INDICATION
  11. CRESTOR [Concomitant]
     Indication: DRUG USE FOR UNKNOWN INDICATION
  12. ZIMOVANE [Concomitant]
     Indication: DRUG USE FOR UNKNOWN INDICATION
  13. ACETAMINOPHEN [Concomitant]
     Indication: DRUG USE FOR UNKNOWN INDICATION
  14. LUSTRAL [Concomitant]
     Indication: DRUG USE FOR UNKNOWN INDICATION
  15. ACETAMINOPHEN [Concomitant]
     Indication: DRUG USE FOR UNKNOWN INDICATION
  16. AUGMENTIN '125' [Concomitant]
     Indication: DRUG USE FOR UNKNOWN INDICATION
  17. CLARITHROMYCIN [Concomitant]
     Indication: DRUG USE FOR UNKNOWN INDICATION
  18. SPIRIVA [Concomitant]
     Indication: DRUG USE FOR UNKNOWN INDICATION
  19. LASIX [Concomitant]
     Indication: DRUG USE FOR UNKNOWN INDICATION
  20. PROCORALAN [Concomitant]
     Indication: DRUG USE FOR UNKNOWN INDICATION
  21. VENTOLIN [Concomitant]
     Indication: DRUG USE FOR UNKNOWN INDICATION
  22. FLIXOTIDE [Concomitant]
     Indication: DRUG USE FOR UNKNOWN INDICATION
  23. OMEPRAZOLE [Concomitant]
     Indication: DRUG USE FOR UNKNOWN INDICATION
  24. ZOLPIDEM TARTRATE [Concomitant]
     Indication: DRUG USE FOR UNKNOWN INDICATION
  25. SLOW-K [Concomitant]
     Indication: DRUG USE FOR UNKNOWN INDICATION

REACTIONS (4)
  - ASTHMA [None]
  - DYSPNOEA [None]
  - HYPOAESTHESIA ORAL [None]
  - SINUS TACHYCARDIA [None]
